FAERS Safety Report 21542936 (Version 5)
Quarter: 2022Q4

REPORT INFORMATION
  Report Type: Spontaneous
  Country: JP (occurrence: JP)
  Receive Date: 20221102
  Receipt Date: 20221227
  Transmission Date: 20230112
  Serious: Yes (Hospitalization, Other)
  Sender: FDA-Public Use
  Company Number: JP-MSD-M2022-45885

PATIENT
  Age: 76 Year
  Sex: Male
  Weight: 54 kg

DRUGS (10)
  1. KEYTRUDA [Suspect]
     Active Substance: PEMBROLIZUMAB
     Indication: Oesophageal carcinoma
     Dosage: 200 MILLIGRAM, Q3W
     Route: 041
     Dates: start: 20220901, end: 20221019
  2. CISPLATIN [Concomitant]
     Active Substance: CISPLATIN
     Indication: Oesophageal carcinoma
     Dosage: 80 MILLIGRAM/SQ. METER, Q3W
     Route: 041
     Dates: start: 20220901, end: 20221019
  3. FLUOROURACIL [Concomitant]
     Active Substance: FLUOROURACIL
     Indication: Oesophageal carcinoma
     Dosage: UNK
     Route: 041
     Dates: start: 20220901, end: 20221019
  4. PALONOSETRON [PALONOSETRON HYDROCHLORIDE] [Concomitant]
     Dosage: UNK
     Route: 041
     Dates: start: 20220901, end: 20221019
  5. APREPITANT [Concomitant]
     Active Substance: APREPITANT
     Dosage: UNK
     Route: 048
     Dates: start: 20220901, end: 20221021
  6. CHLORPROMAZINE HYDROCHLORIDE [Concomitant]
     Active Substance: CHLORPROMAZINE HYDROCHLORIDE
     Dosage: UNK
     Route: 048
     Dates: start: 20220905, end: 20221130
  7. SENNOSIDES A AND B [Concomitant]
     Active Substance: SENNOSIDES A AND B
     Dosage: UNK
     Route: 048
     Dates: start: 20220905, end: 20221202
  8. VONOPRAZAN FUMARATE [Concomitant]
     Active Substance: VONOPRAZAN FUMARATE
     Dosage: UNK
     Route: 048
     Dates: start: 20220831, end: 20221207
  9. AZ [SODIUM BICARBONATE;SODIUM GUALENATE HYDRATE] [Concomitant]
     Dosage: UNK
     Route: 065
     Dates: start: 20220928, end: 20221116
  10. AMBROXOL HYDROCHLORIDE [Concomitant]
     Active Substance: AMBROXOL HYDROCHLORIDE
     Dosage: UNK
     Route: 048
     Dates: start: 20221018, end: 20221207

REACTIONS (3)
  - Pulmonary toxicity [Recovering/Resolving]
  - Renal impairment [Unknown]
  - Hypokalaemia [Recovering/Resolving]

NARRATIVE: CASE EVENT DATE: 20221019
